FAERS Safety Report 9380515 (Version 1)
Quarter: 2013Q3

REPORT INFORMATION
  Report Type: Report from Study
  Country: US (occurrence: US)
  Receive Date: 20130702
  Receipt Date: 20130702
  Transmission Date: 20140515
  Serious: Yes (Hospitalization)
  Sender: FDA-Public Use
  Company Number: US-ACTELION-A-US2013-85231

PATIENT
  Age: 42 Year
  Sex: Female

DRUGS (3)
  1. TRACLEER [Suspect]
     Indication: PULMONARY ARTERIAL HYPERTENSION
     Dosage: UNK
     Route: 048
  2. REMODULIN [Suspect]
     Dosage: 72 NG/KG, UNK
  3. SILDENAFIL [Concomitant]

REACTIONS (2)
  - Abdominal distension [Unknown]
  - Skin reaction [Unknown]
